FAERS Safety Report 5066187-5 (Version None)
Quarter: 2006Q3

REPORT INFORMATION
  Report Type: 
  Country: None (occurrence: None)
  Receive Date: 20060703
  Receipt Date: 20060105
  Transmission Date: 20061208
  Serious: Yes (Hospitalization, Other)
  Sender: FDA-Public Use
  Company Number: WAES 0601USA00574

PATIENT
  Age: 83 Year
  Sex: Male
  Weight: 96.1626 kg

DRUGS (6)
  1. HYZAAR [Suspect]
     Indication: HYPERTENSION
     Dosage: 50-12.5 MG/DAILY/PO
     Route: 048
     Dates: start: 20050101, end: 20051101
  2. COZAAR [Suspect]
     Indication: DRUG USE FOR UNKNOWN INDICATION
     Dosage: PO
     Route: 048
  3. COUMADIN [Concomitant]
  4. IMDUR [Concomitant]
  5. KLOR-CON [Concomitant]
  6. LASIX [Concomitant]

REACTIONS (6)
  - ANOREXIA [None]
  - BLOOD SODIUM DECREASED [None]
  - CONSTIPATION [None]
  - DRY MOUTH [None]
  - NAUSEA [None]
  - THIRST [None]
